FAERS Safety Report 10369374 (Version 1)
Quarter: 2014Q1

REPORT INFORMATION
  Report Type: Spontaneous
  Country: US (occurrence: None)
  Receive Date: 20140306
  Receipt Date: 20140306
  Transmission Date: 20141002
  Serious: Yes (Other)
  Sender: FDA-Public Use
  Company Number: 163-21880-13091286

PATIENT
  Age: 88 Year
  Sex: Male
  Weight: 83.9 kg

DRUGS (22)
  1. REVLIMID [Suspect]
     Indication: PLASMA CELL MYELOMA
     Dosage: 15 MG, 21 IN 28 D, PO
     Route: 048
     Dates: start: 20130507, end: 2013
  2. SIMVASTATIN (TABLETS) [Concomitant]
  3. COQ-10 (UBIDECARENONE) (CAPSULES) [Concomitant]
  4. GLUCOSAMINE (TABLETS) [Concomitant]
  5. SAW PALMETTO (SERENOA REPENS) (CAPSULES) [Concomitant]
  6. BENICAR (OLMESARTAN MEDOXOMIL) (TABLETS) [Concomitant]
  7. OMEPRAZOLE (TABLETS) [Concomitant]
  8. FISH OIL (CAPSULES) [Concomitant]
  9. JALYN (DUTAS-T) (CAPSULES) [Concomitant]
  10. LEVOTHYROXINE (TABLETS) [Concomitant]
  11. ASPIRIN (ACETYLSALICYLIC ACID) (TABLETS) [Concomitant]
  12. CRANBERRY (VACCINIUM OXYCOCCUS FRUIT EXTRACT) (CAPSULES) [Concomitant]
  13. MULTIVITAMIN (MULTIVITAMINS) (UNKNOWN) [Concomitant]
  14. PROCHLORPERAZINE MALEATE (TABLETS) [Concomitant]
  15. GINGER EXTRACT (CAPSULES) [Concomitant]
  16. GINKGO BILOBA (TABLETS) [Concomitant]
  17. BROMELAIN (BROMELAINS) (UNKNOWN) [Concomitant]
  18. AMLODIPINE (TABLETS) [Concomitant]
  19. TOVIAZ (FESOTERODINE FUMARATE) [Concomitant]
  20. VESICARE (SOLIFENACIN SUCCINATE) (TABLETS) [Concomitant]
  21. IMIPRAMINE (TABLETS) [Concomitant]
  22. DECADRON (DEXAMETHASONE) (UNKNOWN) [Concomitant]

REACTIONS (1)
  - Thrombosis [None]
